FAERS Safety Report 7546323-9 (Version None)
Quarter: 2011Q2

REPORT INFORMATION
  Report Type: 
  Country: None (occurrence: None)
  Receive Date: 20110614
  Receipt Date: 20051020
  Transmission Date: 20111010
  Serious: Yes (Death, Life-Threatening, Hospitalization, Disabling, Other)
  Sender: FDA-Public Use
  Company Number: PHNR2005AU01456

PATIENT
  Sex: Female

DRUGS (1)
  1. CLOZAPINE [Suspect]
     Indication: SCHIZOPHRENIA
     Dosage: 0 - 250 MG/DAY
     Dates: start: 20010914

REACTIONS (5)
  - METASTASES TO LUNG [None]
  - DYSPNOEA [None]
  - LYMPHANGITIS [None]
  - BREAST CANCER METASTATIC [None]
  - METASTASES TO BONE [None]
